FAERS Safety Report 5080491-6 (Version None)
Quarter: 2006Q3

REPORT INFORMATION
  Report Type: 
  Country: None (occurrence: None)
  Receive Date: 20060809
  Receipt Date: 20060728
  Transmission Date: 20061208
  Serious: Yes (Life-Threatening, Hospitalization)
  Sender: FDA-Public Use
  Company Number: 2005EU001878

PATIENT
  Age: 64 Year
  Sex: Male

DRUGS (5)
  1. TACROLIMUS (TACROLIMUS ) [Suspect]
     Indication: LIVER TRANSPLANT
     Dosage: 3 MG, UID/QD, ORAL
     Route: 048
     Dates: start: 20050812
  2. ZENAPAX [Suspect]
     Indication: LIVER TRANSPLANT
     Dosage: 184.00 MG, TOTAL DOSE, IV NOS
     Route: 042
     Dates: start: 20050807, end: 20050814
  3. MYCOPHENOLATE MOFETIL [Suspect]
     Indication: LIVER TRANSPLANT
     Dosage: SEE IMAGE
     Route: 048
     Dates: start: 20050807, end: 20050812
  4. MYCOPHENOLATE MOFETIL [Suspect]
     Indication: LIVER TRANSPLANT
     Dosage: SEE IMAGE
     Route: 048
     Dates: start: 20050815
  5. HYDROCORTISONE [Suspect]
     Indication: LIVER TRANSPLANT
     Dosage: 100.00 MG, BID,
     Dates: start: 20050807

REACTIONS (3)
  - BLOOD POTASSIUM INCREASED [None]
  - CARDIAC ARREST [None]
  - LUNG INFECTION PSEUDOMONAL [None]
